FAERS Safety Report 5351137-4 (Version None)
Quarter: 2007Q2

REPORT INFORMATION
  Report Type: 
  Country: None (occurrence: None)
  Receive Date: 20070608
  Receipt Date: 20070528
  Transmission Date: 20071010
  Serious: Yes (Other)
  Sender: FDA-Public Use
  Company Number: BR-PFIZER INC-2007030143

PATIENT
  Sex: Male

DRUGS (2)
  1. MINIDIAB [Suspect]
     Indication: DIABETES MELLITUS INSULIN-DEPENDENT
     Route: 048
     Dates: start: 19970101, end: 20070201
  2. MINIDIAB [Suspect]
     Dosage: DAILY DOSE:20MG-TEXT:2 IN AM, 1 AT NOON, 1 IN PM
     Route: 048

REACTIONS (3)
  - BLOOD GLUCOSE INCREASED [None]
  - DRUG INEFFECTIVE [None]
  - EYE HAEMORRHAGE [None]
